FAERS Safety Report 14896790 (Version 3)
Quarter: 2019Q1

REPORT INFORMATION
  Report Type: Spontaneous
  Country: US (occurrence: US)
  Receive Date: 20180515
  Receipt Date: 20190319
  Transmission Date: 20190417
  Serious: No
  Sender: FDA-Public Use
  Company Number: US-PFIZER INC-2018195301

PATIENT
  Age: 63 Year
  Sex: Female

DRUGS (1)
  1. IBRANCE [Suspect]
     Active Substance: PALBOCICLIB
     Indication: BREAST CANCER FEMALE
     Dosage: 125 MG, CYCLIC [FOR 21 DAYS THEN OFF 7 DAYS]
     Route: 048
     Dates: start: 20180201

REACTIONS (7)
  - Fatigue [Unknown]
  - Nausea [Unknown]
  - Fluid retention [Unknown]
  - Weight increased [Unknown]
  - Alopecia [Unknown]
  - Hot flush [Unknown]
  - Diarrhoea [Unknown]

NARRATIVE: CASE EVENT DATE: 201805
